FAERS Safety Report 7726944-0 (Version None)
Quarter: 2011Q3

REPORT INFORMATION
  Report Type: 
  Country: None (occurrence: None)
  Receive Date: 20110902
  Receipt Date: 20110824
  Transmission Date: 20111222
  Serious: Yes (Hospitalization)
  Sender: FDA-Public Use
  Company Number: IE-JNJFOC-20110813048

PATIENT
  Sex: Female

DRUGS (7)
  1. FOLIC ACID [Concomitant]
  2. ARCOXIA [Concomitant]
  3. CALCIUM CARBONATE [Concomitant]
  4. YASMIN [Concomitant]
  5. METHOTREXATE [Concomitant]
  6. PREDNISOLONE [Concomitant]
  7. SIMPONI [Suspect]
     Indication: PSORIATIC ARTHROPATHY
     Route: 058
     Dates: start: 20110727

REACTIONS (1)
  - ARTHRALGIA [None]
